FAERS Safety Report 6761438-0 (Version None)
Quarter: 2010Q2

REPORT INFORMATION
  Report Type: 
  Country: None (occurrence: None)
  Receive Date: 20100608
  Receipt Date: 20100601
  Transmission Date: 20101027
  Serious: Yes (Death, Other)
  Sender: FDA-Public Use
  Company Number: BR-ROCHE-706928

PATIENT
  Age: 43 Year
  Sex: Female

DRUGS (1)
  1. TAMIFLU [Suspect]
     Indication: H1N1 INFLUENZA
     Dosage: THERAPY STOP DATE REPORTED AS MAY 2010.
     Route: 065
     Dates: start: 20100520

REACTIONS (2)
  - DEATH [None]
  - DRUG INEFFECTIVE [None]
